FAERS Safety Report 4294080-4 (Version None)
Quarter: 2004Q1

REPORT INFORMATION
  Report Type: 
  Country: None (occurrence: None)
  Receive Date: 20040211
  Receipt Date: 20040203
  Transmission Date: 20041129
  Serious: Yes (Life-Threatening)
  Sender: FDA-Public Use
  Company Number: 2004JP000102

PATIENT
  Age: 18 Month
  Sex: Female

DRUGS (1)
  1. CEFIZOX [Suspect]
     Dosage: INTRAVENOUS
     Route: 042
     Dates: start: 20031201, end: 20031201

REACTIONS (3)
  - CHILLS [None]
  - PHARMACEUTICAL PRODUCT COMPLAINT [None]
  - PYREXIA [None]
